FAERS Safety Report 7014163-5 (Version None)
Quarter: 2010Q3

REPORT INFORMATION
  Report Type: 
  Country: None (occurrence: None)
  Receive Date: 20100927
  Receipt Date: 20100916
  Transmission Date: 20110219
  Serious: Yes (Other)
  Sender: FDA-Public Use
  Company Number: ES-JNJFOC-20091200921

PATIENT
  Age: 63 Year
  Sex: Male
  Weight: 64 kg

DRUGS (2)
  1. REMICADE [Suspect]
     Indication: RHEUMATOID ARTHRITIS
     Dosage: DOASGE OF ^350^
     Route: 042
     Dates: start: 20010809
  2. REMICADE [Suspect]
     Route: 042
     Dates: start: 20010809

REACTIONS (3)
  - LYMPHOCYTOSIS [None]
  - MALIGNANT LYMPHOMA UNCLASSIFIABLE LOW GRADE [None]
  - PYREXIA [None]
